FAERS Safety Report 4478494-5 (Version None)
Quarter: 2004Q4

REPORT INFORMATION
  Report Type: 
  Country: None (occurrence: None)
  Receive Date: 20041018
  Receipt Date: 20041018
  Transmission Date: 20050328
  Serious: No
  Sender: FDA-Public Use
  Company Number: None

PATIENT
  Age: 24 Year
  Sex: Female
  Weight: 52.1637 kg

DRUGS (1)
  1. ZOLOFT [Suspect]
     Dosage: 50 MG ONCE A DAY ORAL
     Route: 048

REACTIONS (13)
  - ABDOMINAL PAIN UPPER [None]
  - AGITATION [None]
  - ANOREXIA [None]
  - CRYING [None]
  - DISCOMFORT [None]
  - EMOTIONAL DISORDER [None]
  - FEAR [None]
  - FEELING ABNORMAL [None]
  - FLAT AFFECT [None]
  - FLUID INTAKE REDUCED [None]
  - INSOMNIA [None]
  - MARKEDLY REDUCED DIETARY INTAKE [None]
  - PSYCHOMOTOR HYPERACTIVITY [None]
